FAERS Safety Report 25869594 (Version 1)
Quarter: 2025Q4

REPORT INFORMATION
  Report Type: Spontaneous
  Country: GB (occurrence: GB)
  Receive Date: 20251001
  Receipt Date: 20251001
  Transmission Date: 20260117
  Serious: Yes (Disabling)
  Sender: TEVA
  Company Number: None

PATIENT
  Sex: Female

DRUGS (1)
  1. DICLOFENAC [Suspect]
     Active Substance: DICLOFENAC
     Indication: Stenosis
     Dosage: TEVA UK DICLOFENAC
     Route: 065

REACTIONS (1)
  - Nightmare [Not Recovered/Not Resolved]
